FAERS Safety Report 9067064 (Version 1)
Quarter: 2013Q1

REPORT INFORMATION
  Report Type: Report from Study
  Country: US (occurrence: US)
  Receive Date: 20130201
  Receipt Date: 20130201
  Transmission Date: 20140127
  Serious: No
  Sender: FDA-Public Use
  Company Number: US-ABBOTT-12P-163-1028644-00

PATIENT
  Age: 55 Year
  Sex: Female

DRUGS (3)
  1. HUMIRA [Suspect]
     Indication: PSORIASIS
     Dates: start: 201212
  2. ALBUTEROL [Concomitant]
     Indication: ASTHMA
     Dosage: INHALER AND NEBULIZER
     Route: 055
  3. SINGULAIR [Concomitant]
     Indication: HYPERSENSITIVITY

REACTIONS (5)
  - Feeling abnormal [Not Recovered/Not Resolved]
  - Psoriasis [Not Recovered/Not Resolved]
  - Dry skin [Not Recovered/Not Resolved]
  - Pain [Not Recovered/Not Resolved]
  - Pruritus [Not Recovered/Not Resolved]
